FAERS Safety Report 4774561-7 (Version None)
Quarter: 2005Q3

REPORT INFORMATION
  Report Type: 
  Country: None (occurrence: None)
  Receive Date: 20050921
  Receipt Date: 20050912
  Transmission Date: 20060218
  Serious: Yes (Disabling)
  Sender: FDA-Public Use
  Company Number: PHRM2005FR02448

PATIENT
  Age: 54 Year
  Sex: Female
  Weight: 58 kg

DRUGS (20)
  1. LYTOS [Suspect]
     Route: 048
     Dates: start: 20001201, end: 20030128
  2. LYTOS [Suspect]
     Route: 048
     Dates: start: 20030616
  3. ZOMETA [Suspect]
     Dosage: 4 MG, QMO
     Route: 042
     Dates: start: 20030128, end: 20030615
  4. ZOMETA [Suspect]
     Dosage: 4 MG
     Route: 042
     Dates: start: 20040130, end: 20040130
  5. ZOMETA [Suspect]
     Dosage: 4 MG
     Route: 042
     Dates: start: 20040227, end: 20040227
  6. ZOMETA [Suspect]
     Dosage: 4 MG
     Route: 042
     Dates: start: 20040505, end: 20040505
  7. ZOMETA [Suspect]
     Dosage: 4 MG
     Route: 042
     Dates: start: 20040604, end: 20040604
  8. ZOMETA [Suspect]
     Dosage: 4 MG
     Route: 042
     Dates: start: 20040813, end: 20040813
  9. ZOMETA [Suspect]
     Dosage: 4 MG
     Route: 042
     Dates: start: 20040917, end: 20040917
  10. ZOMETA [Suspect]
     Dosage: 4 MG
     Route: 042
     Dates: start: 20041227, end: 20041227
  11. ZOMETA [Suspect]
     Dosage: 4 MG
     Route: 042
     Dates: start: 20050224, end: 20050224
  12. DEXAMETHASONE [Concomitant]
     Dosage: 4 OR 20 MG BEFORE EACH CHEMOTHERAPY
     Route: 042
     Dates: start: 20040402, end: 20041029
  13. FEMARA [Concomitant]
     Route: 048
  14. NOLVADEX [Concomitant]
     Route: 048
  15. EFFERALGAN [Concomitant]
     Route: 048
  16. ONDANSETRON [Concomitant]
     Route: 065
  17. HERCEPTIN [Concomitant]
     Route: 042
  18. NAVELBINE [Concomitant]
     Route: 065
  19. GEMZAR [Concomitant]
     Route: 042
  20. 5-FU + EPIRUBICIN + CYCLOPHOSPHAMIDE [Concomitant]
     Route: 065

REACTIONS (10)
  - ASEPTIC NECROSIS BONE [None]
  - BACTERIAL INFECTION [None]
  - BONE FRAGMENTATION [None]
  - DENTAL ALVEOLAR ANOMALY [None]
  - GINGIVAL INFECTION [None]
  - IMPAIRED HEALING [None]
  - JAW OPERATION [None]
  - OSTEONECROSIS [None]
  - TOOTH ABSCESS [None]
  - TOOTH EXTRACTION [None]
